FAERS Safety Report 8443925-2 (Version None)
Quarter: 2012Q2

REPORT INFORMATION
  Report Type: 
  Country: None (occurrence: None)
  Receive Date: 20120618
  Receipt Date: 20120604
  Transmission Date: 20120825
  Serious: Yes (Life-Threatening, Hospitalization)
  Sender: FDA-Public Use
  Company Number: SI-UCBSA-053965

PATIENT
  Age: 71 Year
  Sex: Female
  Weight: 63 kg

DRUGS (8)
  1. CIMZIA [Suspect]
     Indication: RHEUMATOID ARTHRITIS
     Route: 058
     Dates: start: 20110426, end: 20120216
  2. CIMZIA [Suspect]
     Route: 058
     Dates: start: 20110414, end: 20110512
  3. NOLIPREL FORTE [Concomitant]
  4. MADOPAR [Concomitant]
     Indication: PARKINSON'S DISEASE
     Dosage: 100/25
     Route: 048
     Dates: start: 20110101
  5. NEXIUM [Concomitant]
  6. ECYTARA [Concomitant]
  7. LEFLUNOMIDE [Suspect]
     Indication: RHEUMATOID ARTHRITIS
     Route: 048
     Dates: start: 20101007, end: 20120216
  8. CONCOR [Concomitant]
     Indication: HYPERTENSION
     Route: 048
     Dates: start: 20110101

REACTIONS (2)
  - DISSEMINATED TUBERCULOSIS [None]
  - MYELODYSPLASTIC SYNDROME [None]
